FAERS Safety Report 5310713-5 (Version None)
Quarter: 2007Q2

REPORT INFORMATION
  Report Type: 
  Country: None (occurrence: None)
  Receive Date: 20070428
  Receipt Date: 20070417
  Transmission Date: 20071010
  Serious: Yes (Hospitalization, Disabling, Other)
  Sender: FDA-Public Use
  Company Number: US-PFIZER INC-2007030674

PATIENT
  Sex: Female
  Weight: 65.8 kg

DRUGS (2)
  1. DEPO-PROVERA [Suspect]
     Indication: CONTRACEPTION
     Route: 030
     Dates: start: 20020101, end: 20060901
  2. PROVIGIL [Concomitant]
     Indication: DEPRESSION

REACTIONS (17)
  - ANOREXIA [None]
  - ARTHRITIS [None]
  - BACK PAIN [None]
  - DEPRESSION [None]
  - FATIGUE [None]
  - HEADACHE [None]
  - HEPATIC FUNCTION ABNORMAL [None]
  - HYPERSOMNIA [None]
  - INTERVERTEBRAL DISC PROTRUSION [None]
  - IRRITABILITY [None]
  - KIDNEY INFECTION [None]
  - MENTAL IMPAIRMENT [None]
  - PYREXIA [None]
  - SCAR [None]
  - SKIN LESION [None]
  - STAPHYLOCOCCAL SKIN INFECTION [None]
  - WEIGHT FLUCTUATION [None]
